FAERS Safety Report 7438641-X (Version None)
Quarter: 2011Q2

REPORT INFORMATION
  Report Type: 
  Country: None (occurrence: None)
  Receive Date: 20110426
  Receipt Date: 20110318
  Transmission Date: 20111010
  Serious: Yes (Other)
  Sender: FDA-Public Use
  Company Number: US-BAYER-201039832NA

PATIENT
  Age: 21 Year
  Sex: Female
  Weight: 95 kg

DRUGS (6)
  1. YASMIN [Suspect]
     Indication: CONTRACEPTION
     Dosage: UNK UNK, QD
     Route: 048
     Dates: start: 20070627, end: 20080801
  2. IBUPROFEN [Concomitant]
     Dosage: UNK UNK, PRN
     Dates: start: 20000101
  3. BENADRYL [Concomitant]
     Dosage: UNK UNK, PRN
  4. ZANTAC [Concomitant]
     Dosage: 150 MG, BID
  5. SINGULAIR [Concomitant]
     Dosage: UNK UNK, PRN
  6. OCELLA [Suspect]
     Indication: CONTRACEPTION
     Route: 048
     Dates: start: 20080801, end: 20091101

REACTIONS (4)
  - HYPOGLYCAEMIA [None]
  - ARRHYTHMIA [None]
  - CHOLECYSTITIS [None]
  - GALLBLADDER DISORDER [None]
